FAERS Safety Report 8061508-3 (Version None)
Quarter: 2012Q1

REPORT INFORMATION
  Report Type: 
  Country: None (occurrence: None)
  Receive Date: 20120120
  Receipt Date: 20111229
  Transmission Date: 20120608
  Serious: No
  Sender: FDA-Public Use
  Company Number: US-ALLERGAN-1116386US

PATIENT
  Sex: Female

DRUGS (2)
  1. RESTASIS [Suspect]
     Indication: DRY EYE
     Dosage: 2 GTT, BID
     Route: 047
     Dates: start: 20111128
  2. RESTASIS [Suspect]
     Dosage: 2 GTT, BID
     Route: 047

REACTIONS (3)
  - EYE DISCHARGE [None]
  - VISUAL IMPAIRMENT [None]
  - SINUS OPERATION [None]
